FAERS Safety Report 9472736 (Version 2)
Quarter: 2014Q1

REPORT INFORMATION
  Report Type: Spontaneous
  Country: US (occurrence: US)
  Receive Date: 20130823
  Receipt Date: 20140108
  Transmission Date: 20141002
  Serious: Yes (Other)
  Sender: FDA-Public Use
  Company Number: US-AMGEN-USASP2013058551

PATIENT
  Age: 42 Year
  Sex: Female

DRUGS (22)
  1. ENBREL [Suspect]
     Indication: RHEUMATOID ARTHRITIS
     Dosage: 50 MG, QWK
     Route: 058
     Dates: start: 20130415, end: 201307
  2. MAXALT [Concomitant]
     Dosage: 5 MG, UNK
  3. ALDACTONE                          /00006201/ [Concomitant]
     Dosage: 50 MG, UNK
  4. LASIX                              /00032601/ [Concomitant]
     Dosage: 20 MG, UNK
  5. ZYRTEC [Concomitant]
     Dosage: 5 MG, UNK
  6. ADVAIR [Concomitant]
     Dosage: ADVAIR DISKU 250/50
  7. HYDRALAZINE [Concomitant]
     Dosage: 10 MG, UNK
  8. LEVOTHYROXIN [Concomitant]
     Dosage: 112 MUG, UNK
  9. CLONIDINE [Concomitant]
     Dosage: 0.1 MG, UNK
  10. EPIPEN [Concomitant]
     Dosage: 0.3 MG, UNK
  11. PYRIDIUM [Concomitant]
     Dosage: 200 MG, UNK
  12. VERAPAMIL [Concomitant]
     Dosage: 120 MG ER, UNK
  13. SKELAXIN                           /00611501/ [Concomitant]
     Dosage: 800 MG, UNK
  14. TESSALON [Concomitant]
     Dosage: 200 MG, UNK
  15. CELEXA                             /00582602/ [Concomitant]
     Dosage: 20 MG, UNK
  16. BENADRYL                           /00000402/ [Concomitant]
     Dosage: 25 MG, UNK
  17. XOPENEX HFA [Concomitant]
     Dosage: XOPENEX HFA AER
  18. PROVIGIL                           /01265601/ [Concomitant]
     Dosage: 200 MG, UNK
  19. DEXILANT [Concomitant]
     Dosage: 30 MG, UNK
  20. XOLAIR [Concomitant]
     Dosage: XOLAIR SOL 150 MG, UNK
  21. BUTRANS                            /00444001/ [Concomitant]
     Dosage: 5 MUG/HR, UNK
  22. XELJANZ [Concomitant]
     Dosage: 5 MG, BID
     Dates: start: 201308

REACTIONS (16)
  - Urinary tract infection [Not Recovered/Not Resolved]
  - Pain [Recovered/Resolved]
  - Alopecia [Recovered/Resolved]
  - Malaise [Recovered/Resolved]
  - Oropharyngeal pain [Not Recovered/Not Resolved]
  - Condition aggravated [Not Recovered/Not Resolved]
  - Joint swelling [Not Recovered/Not Resolved]
  - Arthralgia [Not Recovered/Not Resolved]
  - Local swelling [Not Recovered/Not Resolved]
  - Swelling face [Not Recovered/Not Resolved]
  - Lymphadenopathy [Not Recovered/Not Resolved]
  - Sinusitis [Not Recovered/Not Resolved]
  - Herpes zoster [Not Recovered/Not Resolved]
  - Bronchitis [Recovered/Resolved]
  - Laryngitis bacterial [Recovered/Resolved]
  - Drug ineffective [Not Recovered/Not Resolved]
